FAERS Safety Report 5523913-6 (Version None)
Quarter: 2007Q4

REPORT INFORMATION
  Report Type: 
  Country: None (occurrence: None)
  Receive Date: 20071121
  Receipt Date: 20071119
  Transmission Date: 20080405
  Serious: Yes (Other)
  Sender: FDA-Public Use
  Company Number: US-SHR-US-2007-033062

PATIENT
  Age: 48 Year
  Sex: Female

DRUGS (1)
  1. BETASERON [Suspect]
     Dosage: 8 MIU, EVERY 2D
     Route: 058
     Dates: start: 20070529

REACTIONS (10)
  - BACK PAIN [None]
  - BLOOD URINE PRESENT [None]
  - CROHN'S DISEASE [None]
  - DRY MOUTH [None]
  - FEELING ABNORMAL [None]
  - HOT FLUSH [None]
  - HYPOAESTHESIA [None]
  - ORAL MUCOSAL DISCOLOURATION [None]
  - PAIN [None]
  - PYREXIA [None]
